FAERS Safety Report 16970928 (Version 1)
Quarter: 2019Q4

REPORT INFORMATION
  Report Type: Spontaneous
  Country: US (occurrence: US)
  Receive Date: 20191028
  Receipt Date: 20191028
  Transmission Date: 20200122
  Serious: Yes (Hospitalization)
  Sender: FDA-Public Use
  Company Number: None

PATIENT
  Age: 61 Year
  Sex: Female

DRUGS (13)
  1. OXYCODONE AND ACETAMINOPHEN [Concomitant]
     Active Substance: ACETAMINOPHEN\OXYCODONE HYDROCHLORIDE
  2. TRAZODONE [Concomitant]
     Active Substance: TRAZODONE HYDROCHLORIDE
  3. HUMIRA [Suspect]
     Active Substance: ADALIMUMAB
     Indication: PSORIATIC ARTHROPATHY
     Dosage: ?          OTHER FREQUENCY:EVERY 14 DAYS;?
     Route: 058
     Dates: start: 20180820
  4. FOLIC ACID. [Concomitant]
     Active Substance: FOLIC ACID
  5. CITALOPRAM [Concomitant]
     Active Substance: CITALOPRAM HYDROBROMIDE
  6. ESZ [Concomitant]
  7. POT CL MICRO [Concomitant]
  8. MORPHINE SUL [Concomitant]
     Active Substance: MORPHINE SULFATE
  9. SYNTHROID [Concomitant]
     Active Substance: LEVOTHYROXINE SODIUM
  10. TIZANIDINE. [Concomitant]
     Active Substance: TIZANIDINE
  11. METRONIDAZOL [Concomitant]
     Active Substance: METRONIDAZOLE
  12. VITAMIN D [Concomitant]
     Active Substance: VITAMIN D NOS
  13. XIFAXAN [Concomitant]
     Active Substance: RIFAXIMIN

REACTIONS (3)
  - Infection [None]
  - Condition aggravated [None]
  - Therapy cessation [None]
